FAERS Safety Report 4289719-3 (Version None)
Quarter: 2004Q1

REPORT INFORMATION
  Report Type: 
  Country: None (occurrence: None)
  Receive Date: 20040206
  Receipt Date: 20030701
  Transmission Date: 20041129
  Serious: Yes (Other)
  Sender: FDA-Public Use
  Company Number: HQWYE828302JUL03

PATIENT
  Age: 29 Year
  Sex: Female
  Weight: 81.72 kg

DRUGS (4)
  1. NORPLANT SYSTEM [Suspect]
     Indication: CONTRACEPTION
     Dosage: 6 CAPSULES, SUBCUTANEOUS
     Route: 058
     Dates: start: 19940101, end: 20021029
  2. TUMS (CALCIUM CARBONATE/MAGNESIUM CARBONATE/MAGNESIUM TRISCILICATE) [Concomitant]
  3. PEPTO-BISMOL (BISMUTH SUBSALICYLATE) [Concomitant]
  4. VITAMINS NOS (VITAMINS NOS) [Concomitant]

REACTIONS (3)
  - COMPLICATION OF DEVICE REMOVAL [None]
  - MIGRATION OF IMPLANT [None]
  - PREGNANCY [None]
